FAERS Safety Report 9486251 (Version 1)
Quarter: 2013Q3

REPORT INFORMATION
  Report Type: Spontaneous
  Country: US (occurrence: US)
  Receive Date: 20130829
  Receipt Date: 20130829
  Transmission Date: 20140515
  Serious: No
  Sender: FDA-Public Use
  Company Number: US-PFIZER INC-2013244528

PATIENT
  Age: 62 Year
  Sex: Female
  Weight: 90.7 kg

DRUGS (9)
  1. LEVOXYL [Suspect]
     Indication: THYROID HORMONE REPLACEMENT THERAPY
     Dosage: 100 UG, DAILY
     Dates: start: 2003, end: 201307
  2. LEVOTHYROXINE SODIUM [Suspect]
     Indication: THYROID HORMONE REPLACEMENT THERAPY
     Dosage: 100 UG, DAILY
     Dates: start: 2013
  3. ARMOUR THYROID [Suspect]
     Indication: THYROID HORMONE REPLACEMENT THERAPY
     Dosage: 0.5 G, DAILY
     Dates: start: 2003
  4. SYNTHROID [Suspect]
     Indication: THYROID HORMONE REPLACEMENT THERAPY
     Dosage: 100 UG, DAILY
     Dates: start: 20130730, end: 20130812
  5. TIROSINT [Suspect]
     Indication: THYROID HORMONE REPLACEMENT THERAPY
     Dosage: 100 UG, DAILY
     Dates: start: 20130708, end: 201307
  6. ACTEMRA [Concomitant]
     Indication: RHEUMATOID ARTHRITIS
     Dosage: 80 MG, CYCLIC (EVERY 4 WEEKS)
  7. COREG [Concomitant]
     Indication: BLOOD PRESSURE ABNORMAL
     Dosage: 12.5 MG, DAILY
  8. HYZAAR [Concomitant]
     Indication: BLOOD PRESSURE ABNORMAL
     Dosage: LOSARTAN POTASSIUM 100 MG/ HYDROCHLOROTHIAZIDE 25 MG, DAILY
  9. DOXAZOSIN [Concomitant]
     Indication: BLOOD PRESSURE ABNORMAL
     Dosage: 2 MG, 2X/DAY

REACTIONS (7)
  - Gait disturbance [Not Recovered/Not Resolved]
  - Drug ineffective [Unknown]
  - Fatigue [Not Recovered/Not Resolved]
  - Oedema peripheral [Not Recovered/Not Resolved]
  - Eye swelling [Not Recovered/Not Resolved]
  - Arthralgia [Not Recovered/Not Resolved]
  - Confusional state [Not Recovered/Not Resolved]
